FAERS Safety Report 10771625 (Version 1)
Quarter: 2015Q1

REPORT INFORMATION
  Report Type: Spontaneous
  Country: US (occurrence: US)
  Receive Date: 20150206
  Receipt Date: 20150206
  Transmission Date: 20150721
  Serious: Yes (Death, Life-Threatening, Hospitalization)
  Sender: FDA-Public Use
  Company Number: GXBR2015US000683

PATIENT
  Sex: Male

DRUGS (1)
  1. TESTOSTERONE CYPIONATE INJECTABLE [Suspect]
     Active Substance: TESTOSTERONE CYPIONATE
     Indication: BLOOD TESTOSTERONE DECREASED
     Dosage: UNK MG, UNK
     Route: 065
     Dates: start: 201012, end: 201311

REACTIONS (7)
  - Myocardial infarction [Unknown]
  - Cardiac disorder [Unknown]
  - Pulmonary embolism [Unknown]
  - Death [Fatal]
  - Hypertension [Unknown]
  - Hypotension [Unknown]
  - Cerebrovascular accident [Unknown]

NARRATIVE: CASE EVENT DATE: 20120813
